FAERS Safety Report 20043414 (Version 1)
Quarter: 2021Q4

REPORT INFORMATION
  Report Type: Other
  Country: None (occurrence: SA)
  Receive Date: 20211108
  Receipt Date: 20211108
  Transmission Date: 20220303
  Serious: Yes (Other)
  Sender: FDA-Public Use
  Company Number: SA-CorePharma LLC-2121574

PATIENT
  Age: 58 Year
  Sex: Female

DRUGS (2)
  1. SUMATRIPTAN [Suspect]
     Active Substance: SUMATRIPTAN
     Indication: Product used for unknown indication
     Route: 065
  2. NICOTINE [Suspect]
     Active Substance: NICOTINE
     Route: 065

REACTIONS (2)
  - Reversible cerebral vasoconstriction syndrome [Unknown]
  - Overdose [Unknown]
